FAERS Safety Report 9704439 (Version 2)
Quarter: 2014Q3

REPORT INFORMATION
  Report Type: Spontaneous
  Country: US (occurrence: US)
  Receive Date: 20131122
  Receipt Date: 20140918
  Transmission Date: 20150326
  Serious: Yes (Hospitalization, Other)
  Sender: FDA-Public Use
  Company Number: US-BAYER-2013-141074

PATIENT
  Age: 35 Year
  Sex: Female
  Weight: 81.63 kg

DRUGS (3)
  1. IBUPROFEN [IBUPROFEN] [Concomitant]
     Active Substance: IBUPROFEN
     Indication: CARPAL TUNNEL SYNDROME
  2. MIRENA [Suspect]
     Active Substance: LEVONORGESTREL
     Indication: CONTRACEPTION
     Dosage: 20 MCG/24HR, CONT
     Route: 015
     Dates: start: 20050316, end: 20050526
  3. UREA. [Concomitant]
     Active Substance: UREA
     Indication: HYPERKERATOSIS

REACTIONS (8)
  - Genital haemorrhage [None]
  - Abdominal pain lower [None]
  - Anxiety [None]
  - Pain [None]
  - Embedded device [None]
  - Depression [None]
  - Device issue [None]
  - Device difficult to use [None]

NARRATIVE: CASE EVENT DATE: 200504
